FAERS Safety Report 6644637-8 (Version None)
Quarter: 2010Q1

REPORT INFORMATION
  Report Type: 
  Country: None (occurrence: None)
  Receive Date: 20100318
  Receipt Date: 20100318
  Transmission Date: 20100710
  Serious: Yes (Hospitalization)
  Sender: FDA-Public Use
  Company Number: None

PATIENT
  Age: 76 Year
  Sex: Male
  Weight: 58.1 kg

DRUGS (4)
  1. FENTANYL CITRATE [Suspect]
     Indication: AGITATION
     Dosage: 50 MCG ONCE IV
     Route: 042
     Dates: start: 20091001, end: 20091001
  2. FENTANYL CITRATE [Suspect]
     Indication: SEDATION
     Dosage: 50 MCG ONCE IV
     Route: 042
     Dates: start: 20091001, end: 20091001
  3. MIDAZOLAM HCL [Suspect]
     Indication: AGITATION
     Dosage: 1 MG ONCE IV
     Route: 042
     Dates: start: 20091001, end: 20091001
  4. MIDAZOLAM HCL [Suspect]
     Indication: SEDATION
     Dosage: 1 MG ONCE IV
     Route: 042
     Dates: start: 20091001, end: 20091001

REACTIONS (2)
  - CONFUSIONAL STATE [None]
  - UNRESPONSIVE TO STIMULI [None]
